FAERS Safety Report 16314618 (Version 1)
Quarter: 2019Q2

REPORT INFORMATION
  Report Type: Spontaneous
  Country: AU (occurrence: AU)
  Receive Date: 20190515
  Receipt Date: 20190515
  Transmission Date: 20190711
  Serious: Yes (Other)
  Sender: FDA-Public Use
  Company Number: AU-SA-2019SA129126

PATIENT
  Age: 68 Year
  Sex: Female

DRUGS (7)
  1. FOLIC ACID. [Suspect]
     Active Substance: FOLIC ACID
     Indication: PRODUCT USED FOR UNKNOWN INDICATION
     Dosage: 10 MG, QW
     Route: 065
  2. LEFLUNOMIDE. [Suspect]
     Active Substance: LEFLUNOMIDE
     Indication: PRODUCT USED FOR UNKNOWN INDICATION
     Dosage: 20 MG, Q5D
     Route: 065
  3. ERGOCALCIFEROL. [Suspect]
     Active Substance: ERGOCALCIFEROL
     Dosage: UNK
  4. HUMIRA [Suspect]
     Active Substance: ADALIMUMAB
     Dosage: UNK UNK, UNK
     Route: 065
  5. TOFACITINIB [Suspect]
     Active Substance: TOFACITINIB
     Dosage: UNK
  6. METHOTREXATE. [Suspect]
     Active Substance: METHOTREXATE
     Indication: PRODUCT USED FOR UNKNOWN INDICATION
     Dosage: 20 MG, QW
     Route: 065
  7. RIVAROXABAN [Suspect]
     Active Substance: RIVAROXABAN
     Dosage: UNK

REACTIONS (12)
  - Cough [Recovered/Resolved]
  - Osteoarthritis [Recovered/Resolved]
  - Embolism [Unknown]
  - Alanine aminotransferase abnormal [Unknown]
  - Transaminases increased [Unknown]
  - Haemochromatosis [Recovered/Resolved]
  - Dyspnoea exertional [Recovered/Resolved]
  - Periorbital oedema [Recovered/Resolved]
  - Rash [Recovered/Resolved]
  - Pulmonary embolism [Recovered/Resolved]
  - Liver function test increased [Unknown]
  - Drug ineffective [Recovered/Resolved]

NARRATIVE: CASE EVENT DATE: 2017
